FAERS Safety Report 9941233 (Version 1)
Quarter: 2014Q1

REPORT INFORMATION
  Report Type: Report from Study
  Country: US (occurrence: US)
  Receive Date: 20140303
  Receipt Date: 20140303
  Transmission Date: 20141002
  Serious: No
  Sender: FDA-Public Use
  Company Number: US-ABBVIE-13P-163-1039835-00

PATIENT
  Age: 45 Year
  Sex: Female

DRUGS (7)
  1. HUMIRA [Suspect]
     Indication: COLITIS ULCERATIVE
     Dates: start: 20121112
  2. LIALDA [Concomitant]
     Indication: COLITIS
  3. ZYRTEC [Concomitant]
     Indication: PRODUCT USED FOR UNKNOWN INDICATION
  4. FLUTICASONE [Concomitant]
     Indication: HYPERSENSITIVITY
     Dosage: 2 SPRAYS EACH NOTRIL DAILY AT BEDTIME
     Route: 045
  5. GUAIFENESIN [Concomitant]
     Indication: PRODUCT USED FOR UNKNOWN INDICATION
  6. MUCINEX [Concomitant]
     Indication: HYPERSENSITIVITY
  7. TYLENOL [Concomitant]
     Indication: PAIN

REACTIONS (2)
  - Injection site reaction [Recovering/Resolving]
  - Injection site bruising [Recovering/Resolving]
